FAERS Safety Report 11152469 (Version 1)
Quarter: 2015Q2

REPORT INFORMATION
  Report Type: Spontaneous
  Country: US (occurrence: US)
  Receive Date: 20150601
  Receipt Date: 20150601
  Transmission Date: 20150821
  Serious: Yes (Other)
  Sender: FDA-Public Use
  Company Number: US-GLAXOSMITHKLINE-US2015073312

PATIENT
  Age: 52 Year
  Sex: Female

DRUGS (5)
  1. BENADRYL (USA) [Concomitant]
  2. ANORO ELLIPTA [Suspect]
     Active Substance: UMECLIDINIUM BROMIDE\VILANTEROL TRIFENATATE
     Indication: RESPIRATORY TRACT CONGESTION
     Dosage: 1 PUFF(S), 1D
     Route: 055
     Dates: start: 20150523, end: 20150527
  3. EMETROL [Concomitant]
  4. ZYRTEC [Concomitant]
     Active Substance: CETIRIZINE HYDROCHLORIDE
  5. PEPTO-BISMOL [Concomitant]
     Active Substance: BISMUTH SUBSALICYLATE\CALCIUM CARBONATE

REACTIONS (7)
  - Hunger [Recovered/Resolved]
  - Nausea [Recovered/Resolved]
  - Chills [Recovered/Resolved]
  - Pruritus [Recovering/Resolving]
  - Drug dose omission [Recovered/Resolved]
  - Starvation [Recovered/Resolved]
  - Vomiting [Recovered/Resolved]

NARRATIVE: CASE EVENT DATE: 20150524
